FAERS Safety Report 15093364 (Version 1)
Quarter: 2018Q2

REPORT INFORMATION
  Report Type: Spontaneous
  Country: ZA (occurrence: ZA)
  Receive Date: 20180629
  Receipt Date: 20180629
  Transmission Date: 20180711
  Serious: Yes (Disabling, Other)
  Sender: FDA-Public Use
  Company Number: ZA-009507513-1806ZAF001796

PATIENT
  Age: 66 Year
  Sex: Male

DRUGS (2)
  1. INTRON A [Suspect]
     Active Substance: INTERFERON ALFA-2B
     Dosage: 20000000 UNITS, MONDAY, WEDNESDAY AND FRIDAYS
     Route: 042
     Dates: start: 20180514
  2. INTRON A [Suspect]
     Active Substance: INTERFERON ALFA-2B
     Dosage: 40000000 UNITS, DAILY
     Route: 042
     Dates: start: 2018, end: 2018

REACTIONS (10)
  - Psoriatic arthropathy [Unknown]
  - Productive cough [Unknown]
  - Headache [Unknown]
  - Nail pigmentation [Unknown]
  - Onychomadesis [Unknown]
  - Malaise [Unknown]
  - Influenza like illness [Unknown]
  - Feeling abnormal [Unknown]
  - Cough [Unknown]
  - Gait inability [Unknown]

NARRATIVE: CASE EVENT DATE: 2018
